FAERS Safety Report 14944811 (Version 1)
Quarter: 2018Q2

REPORT INFORMATION
  Report Type: Report from Study
  Country: ES (occurrence: ES)
  Receive Date: 20180529
  Receipt Date: 20180529
  Transmission Date: 20180711
  Serious: Yes (Life-Threatening, Hospitalization)
  Sender: FDA-Public Use
  Company Number: ES-TEVA-2018-ES-896969

PATIENT
  Age: 53 Year
  Sex: Female

DRUGS (8)
  1. METFORMIN [Suspect]
     Active Substance: METFORMIN HYDROCHLORIDE
     Indication: DIABETES MELLITUS
     Route: 048
     Dates: start: 20170817, end: 20170909
  2. EMULIQUEN LAXANTE (CHONDRUS CRISPUS\PARAFFIN\PHENOLPHTHALEIN) [Suspect]
     Active Substance: CHONDRUS CRISPUS\PARAFFIN\PHENOLPHTHALEIN
     Dosage: 1-0-1
     Route: 048
     Dates: start: 20170817, end: 20170909
  3. LESCOL PROLIB 80 MG COMPRIMIDOS DE LIBERACION PROLONGADA , 28 COMPRIMI [Concomitant]
     Dosage: 0-0-1
     Route: 048
     Dates: start: 20060101
  4. MICARDIS 80 MG COMPRIMIDOS [Concomitant]
     Dosage: 0-0-1
     Route: 048
     Dates: start: 20150101
  5. PULMICORT 0,25 MG/ML SUSPENSION PARA INHALACION POR  NEBULIZADOR, 100 [Concomitant]
     Dosage: 1-0-1
     Route: 055
     Dates: start: 20060101
  6. PREDNISONA (886A) [Concomitant]
     Active Substance: PREDNISONE
     Dosage: DIA
     Route: 048
     Dates: start: 20150101
  7. FUROSEMIDA (1615A) [Concomitant]
     Active Substance: FUROSEMIDE
     Dosage: 1-0-0
     Route: 048
     Dates: start: 20150101
  8. OMEPRAZOL (2141A) [Concomitant]
     Active Substance: OMEPRAZOLE
     Dosage: 1 CP DIA
     Route: 048
     Dates: start: 20150101

REACTIONS (4)
  - Hyperkalaemia [Recovered/Resolved]
  - Acute kidney injury [Recovered/Resolved]
  - Hyponatraemia [Recovered/Resolved]
  - Lactic acidosis [Recovered/Resolved]

NARRATIVE: CASE EVENT DATE: 20170909
